FAERS Safety Report 9973231 (Version 2)
Quarter: 2014Q1

REPORT INFORMATION
  Report Type: Report from Study
  Country: US (occurrence: US)
  Receive Date: 20140306
  Receipt Date: 20140306
  Transmission Date: 20141002
  Serious: No
  Sender: FDA-Public Use
  Company Number: US-ABBVIE-13P-163-1148323-00

PATIENT
  Age: 66 Year
  Sex: Male

DRUGS (10)
  1. HUMIRA [Suspect]
     Indication: RHEUMATOID ARTHRITIS
     Route: 058
     Dates: start: 200301
  2. METHOTREXATE [Concomitant]
     Indication: RHEUMATOID ARTHRITIS
  3. FOLIC ACID [Concomitant]
     Indication: POLYMEDICATION
  4. BABY ASPIRIN [Concomitant]
     Indication: CARDIAC DISORDER
  5. PREVACID [Concomitant]
     Indication: GASTRIC DISORDER
  6. LOSARTAN [Concomitant]
     Indication: BLOOD PRESSURE
  7. FLUTICASONE [Concomitant]
     Indication: SINUS DISORDER
     Dosage: ONE SPRAY EACH NOSTRIL
  8. ATROVENT [Concomitant]
     Indication: CHRONIC OBSTRUCTIVE PULMONARY DISEASE
     Route: 055
  9. COUNTER VITAMINS [Concomitant]
     Indication: PRODUCT USED FOR UNKNOWN INDICATION
  10. LOSARTAN / HYDROCHLOROTHIAZID STADA [Concomitant]
     Indication: HYPERTENSION
     Dosage: 50/12.5 MG

REACTIONS (8)
  - Joint stiffness [Unknown]
  - Injection site haemorrhage [Recovered/Resolved]
  - Incorrect dose administered [Unknown]
  - Chronic obstructive pulmonary disease [Recovering/Resolving]
  - Arthralgia [Recovered/Resolved]
  - Incorrect dose administered [Unknown]
  - Wrong technique in drug usage process [Unknown]
  - Injection site haemorrhage [Recovered/Resolved]
